FAERS Safety Report 7063656-3 (Version None)
Quarter: 2010Q4

REPORT INFORMATION
  Report Type: 
  Country: None (occurrence: None)
  Receive Date: 20101026
  Receipt Date: 20100810
  Transmission Date: 20110411
  Serious: No
  Sender: FDA-Public Use
  Company Number: US-ABBOTT-10P-163-0657138-00

PATIENT
  Sex: Female

DRUGS (4)
  1. LUPRON [Suspect]
     Indication: PRODUCT USED FOR UNKNOWN INDICATION
  2. LUPRON [Suspect]
  3. PROGESTERONE IN OIL [Concomitant]
     Indication: PRODUCT USED FOR UNKNOWN INDICATION
  4. ESTRACE ESTRADIOL TABLETS [Concomitant]
     Indication: PRODUCT USED FOR UNKNOWN INDICATION

REACTIONS (5)
  - AGGRESSION [None]
  - FEELING ABNORMAL [None]
  - HEADACHE [None]
  - MALAISE [None]
  - NAUSEA [None]
